FAERS Safety Report 6391712-1 (Version None)
Quarter: 2009Q4

REPORT INFORMATION
  Report Type: 
  Country: None (occurrence: None)
  Receive Date: 20091007
  Receipt Date: 20090807
  Transmission Date: 20100525
  Serious: No
  Sender: FDA-Public Use
  Company Number: US-BAYER-200929840NA

PATIENT
  Age: 64 Year
  Sex: Female

DRUGS (2)
  1. CLIMARA [Suspect]
     Indication: MENOPAUSE
     Route: 062
  2. TYLENOL [Concomitant]
     Dosage: ONCE A MONTH OR ONCE VERY 6 MONTHS

REACTIONS (2)
  - BREAST SWELLING [None]
  - LYMPHADENOPATHY [None]
